FAERS Safety Report 24061182 (Version 8)
Quarter: 2024Q4

REPORT INFORMATION
  Report Type: Spontaneous
  Country: US (occurrence: US)
  Receive Date: 20240708
  Receipt Date: 20241007
  Transmission Date: 20250114
  Serious: No
  Sender: PFIZER
  Company Number: US-PFIZER INC-PV202400087862

PATIENT
  Age: 80 Year
  Sex: Female

DRUGS (2)
  1. IBRANCE [Suspect]
     Active Substance: PALBOCICLIB
     Dosage: 100 MG
  2. IBRANCE [Suspect]
     Active Substance: PALBOCICLIB
     Dosage: 75 MG

REACTIONS (19)
  - Pain [Unknown]
  - Bone pain [Unknown]
  - Arthralgia [Not Recovered/Not Resolved]
  - Insomnia [Not Recovered/Not Resolved]
  - Diarrhoea [Not Recovered/Not Resolved]
  - Nausea [Not Recovered/Not Resolved]
  - Vomiting [Not Recovered/Not Resolved]
  - Decreased appetite [Not Recovered/Not Resolved]
  - Fatigue [Not Recovered/Not Resolved]
  - Back pain [Not Recovered/Not Resolved]
  - Alopecia [Unknown]
  - Blood creatinine decreased [Unknown]
  - Myalgia [Not Recovered/Not Resolved]
  - Constipation [Unknown]
  - Confusional state [Unknown]
  - White blood cell count decreased [Not Recovered/Not Resolved]
  - Lymphocyte count decreased [Unknown]
  - Asthenia [Unknown]
  - Bowel movement irregularity [Unknown]
